FAERS Safety Report 9967757 (Version 2)
Quarter: 2014Q2

REPORT INFORMATION
  Report Type: Spontaneous
  Country: IT (occurrence: IT)
  Receive Date: 20140305
  Receipt Date: 20140612
  Transmission Date: 20141212
  Serious: Yes (Hospitalization)
  Sender: FDA-Public Use
  Company Number: IT-MYLANLABS-2014S1004064

PATIENT
  Age: 75 Year
  Sex: Female

DRUGS (2)
  1. AZITHROMYCIN DIHYDRATE [Suspect]
     Indication: PNEUMONITIS
     Dates: start: 20131229, end: 20140101
  2. CEFIXORAL [Suspect]
     Indication: PNEUMONITIS
     Dates: start: 20131229, end: 20140101

REACTIONS (1)
  - Purpura [Recovered/Resolved]
